FAERS Safety Report 15614266 (Version 6)
Quarter: 2019Q3

REPORT INFORMATION
  Report Type: Report from Study
  Country: CO (occurrence: CO)
  Receive Date: 20181113
  Receipt Date: 20190911
  Transmission Date: 20191004
  Serious: Yes (Other)
  Sender: FDA-Public Use
  Company Number: CO-SA-2018SA110062

PATIENT
  Age: 38 Year
  Sex: Male

DRUGS (1)
  1. ALEMTUZUMAB [Suspect]
     Active Substance: ALEMTUZUMAB
     Indication: MULTIPLE SCLEROSIS
     Dosage: UNK UNK,QD
     Route: 041
     Dates: start: 20180313, end: 20180317

REACTIONS (8)
  - Bacteriuria [Recovered/Resolved]
  - Leukocyturia [Recovered/Resolved]
  - Leukocyturia [Recovered/Resolved]
  - Basophil count decreased [Recovered/Resolved]
  - Haematuria [Recovered/Resolved]
  - Urinary tract infection bacterial [Recovered/Resolved]
  - White blood cell count decreased [Recovered/Resolved]
  - Lymphocyte count decreased [Recovered/Resolved]

NARRATIVE: CASE EVENT DATE: 20180412
